FAERS Safety Report 5568243-1 (Version None)
Quarter: 2007Q4

REPORT INFORMATION
  Report Type: 
  Country: None (occurrence: None)
  Receive Date: 20071218
  Receipt Date: 20071205
  Transmission Date: 20080405
  Serious: Yes (Other)
  Sender: FDA-Public Use
  Company Number: US021487

PATIENT
  Age: 44 Year
  Sex: Female

DRUGS (4)
  1. PROVIGIL [Suspect]
     Indication: ASTHENIA
     Dosage: 200 MG QD ORAL
     Route: 048
     Dates: start: 20070706
  2. PROVIGIL [Suspect]
     Indication: ATTENTION DEFICIT/HYPERACTIVITY DISORDER
     Dosage: 200 MG QD ORAL
     Route: 048
     Dates: start: 20070706
  3. EPINEPHRINE [Suspect]
     Indication: HYPERSENSITIVITY
     Dosage: 2 PENS ADMINISTERED IN A YEAR PRN
  4. EPINEPHRINE [Suspect]
     Indication: HYPERSENSITIVITY
     Dosage: INCREASED USAGE OF EPI PEN TO 5 TIMES IN A WEEK PRN
     Dates: start: 20070701, end: 20070907

REACTIONS (7)
  - ANXIETY [None]
  - COELIAC DISEASE [None]
  - CONDITION AGGRAVATED [None]
  - COW'S MILK INTOLERANCE [None]
  - FOOD ALLERGY [None]
  - HYPERSENSITIVITY [None]
  - LACTOSE INTOLERANCE [None]
